FAERS Safety Report 8396716-5 (Version None)
Quarter: 2012Q2

REPORT INFORMATION
  Report Type: 
  Country: None (occurrence: None)
  Receive Date: 20120530
  Receipt Date: 20120524
  Transmission Date: 20120825
  Serious: Yes (Other)
  Sender: FDA-Public Use
  Company Number: GB-PFIZER INC-2012054915

PATIENT
  Age: 73 Year
  Sex: Male
  Weight: 57.143 kg

DRUGS (7)
  1. BISOPROLOL FUMARATE [Concomitant]
     Indication: ACUTE CORONARY SYNDROME
     Dosage: 1.25 MG, 1X/DAY
     Route: 048
     Dates: start: 20111101
  2. LIPITOR [Suspect]
     Indication: ACUTE CORONARY SYNDROME
     Dosage: 80 MG, 1X/DAY
     Route: 048
     Dates: start: 20111101, end: 20120201
  3. PRASUGREL [Concomitant]
     Indication: ACUTE CORONARY SYNDROME
     Dosage: 10 MG, 1X/DAY
     Route: 048
     Dates: start: 20111101
  4. PRASUGREL [Concomitant]
     Indication: STENT PLACEMENT
  5. ACETYLSALICYLIC ACID [Concomitant]
     Dosage: 75 MG, UNK
  6. BISOPROLOL FUMARATE [Concomitant]
     Indication: STENT PLACEMENT
  7. FINASTERIDE [Concomitant]
     Indication: BENIGN PROSTATIC HYPERPLASIA
     Dosage: 5 MG, 1X/DAY
     Route: 048

REACTIONS (13)
  - CONTUSION [None]
  - ABNORMAL DREAMS [None]
  - NAUSEA [None]
  - EYE HAEMORRHAGE [None]
  - BLEEDING TIME PROLONGED [None]
  - TONGUE DISCOLOURATION [None]
  - GASTROOESOPHAGEAL REFLUX DISEASE [None]
  - DECREASED APPETITE [None]
  - WEIGHT DECREASED [None]
  - LACERATION [None]
  - EPISTAXIS [None]
  - SCRATCH [None]
  - MALAISE [None]
